FAERS Safety Report 5423762-3 (Version None)
Quarter: 2007Q3

REPORT INFORMATION
  Report Type: 
  Country: None (occurrence: None)
  Receive Date: 20070727
  Receipt Date: 20040921
  Transmission Date: 20080115
  Serious: Yes (Death, Hospitalization)
  Sender: FDA-Public Use
  Company Number: THYM-10291

PATIENT
  Age: 66 Year
  Sex: Male
  Weight: 109 kg

DRUGS (7)
  1. THYMOGLOBULIN [Suspect]
     Indication: MYELODYSPLASTIC SYNDROME
     Dosage: 350 MG QD IV
     Route: 042
     Dates: start: 20030505, end: 20030507
  2. FOLIC ACID [Concomitant]
  3. LISINOPRIL [Concomitant]
  4. TRAZODONE HCL [Concomitant]
  5. FLURBIPROFEN [Concomitant]
  6. DESFERAL [Concomitant]
  7. PREDNISONE [Concomitant]

REACTIONS (7)
  - BODY TEMPERATURE INCREASED [None]
  - EYE HAEMORRHAGE [None]
  - HYDROCEPHALUS [None]
  - HYPERHIDROSIS [None]
  - RETINAL HAEMORRHAGE [None]
  - SPINAL CORD INJURY LUMBAR [None]
  - VITRITIS [None]
